FAERS Safety Report 4576611-X (Version None)
Quarter: 2005Q1

REPORT INFORMATION
  Report Type: 
  Country: None (occurrence: None)
  Receive Date: 20050210
  Receipt Date: 20041221
  Transmission Date: 20050727
  Serious: Yes (Death, Life-Threatening, Other)
  Sender: FDA-Public Use
  Company Number: GB-JNJFOC-20050201095

PATIENT
  Sex: Male
  Weight: 70 kg

DRUGS (9)
  1. REMICADE [Suspect]
     Indication: RHEUMATOID ARTHRITIS
     Route: 042
  2. METHOTREXATE [Concomitant]
  3. LEFLUNOMIDE [Concomitant]
  4. FOLIC ACID [Concomitant]
  5. DIDRONEL [Concomitant]
  6. CALCICHEW [Concomitant]
  7. VOLTAROL [Concomitant]
  8. CO-PROXAMOL [Concomitant]
  9. CO-PROXAMOL [Concomitant]

REACTIONS (2)
  - CORONARY ARTERY ATHEROSCLEROSIS [None]
  - MYOCARDIAL ISCHAEMIA [None]
